FAERS Safety Report 5655436-8 (Version None)
Quarter: 2008Q1

REPORT INFORMATION
  Report Type: 
  Country: None (occurrence: None)
  Receive Date: 20080307
  Receipt Date: 20080226
  Transmission Date: 20080703
  Serious: Yes (Other)
  Sender: FDA-Public Use
  Company Number: BR-ROCHE-550127

PATIENT
  Age: 74 Year
  Sex: Male

DRUGS (1)
  1. ROFERON-A [Suspect]
     Indication: T-CELL LYMPHOMA
     Route: 065

REACTIONS (1)
  - PULMONARY FIBROSIS [None]
